FAERS Safety Report 25889635 (Version 1)
Quarter: 2025Q4

REPORT INFORMATION
  Report Type: Spontaneous
  Country: US (occurrence: US)
  Receive Date: 20251007
  Receipt Date: 20251007
  Transmission Date: 20260117
  Serious: Yes (Other)
  Sender: MYLAN
  Company Number: US-MYLANLABS-2025M1085092

PATIENT
  Age: 38 Year
  Sex: Female

DRUGS (20)
  1. TRIAMCINOLONE [Suspect]
     Active Substance: TRIAMCINOLONE
     Indication: Acquired perforating dermatosis
     Dosage: UNK
  2. TRIAMCINOLONE [Suspect]
     Active Substance: TRIAMCINOLONE
     Dosage: UNK
     Route: 026
  3. TRIAMCINOLONE [Suspect]
     Active Substance: TRIAMCINOLONE
     Dosage: UNK
     Route: 026
  4. TRIAMCINOLONE [Suspect]
     Active Substance: TRIAMCINOLONE
     Dosage: UNK
  5. ISOTRETINOIN [Suspect]
     Active Substance: ISOTRETINOIN
     Indication: Acquired perforating dermatosis
     Dosage: 20 MILLIGRAM, QD (SCHEDULED FOR 3 MONTHS)
  6. ISOTRETINOIN [Suspect]
     Active Substance: ISOTRETINOIN
     Dosage: 20 MILLIGRAM, QD (SCHEDULED FOR 3 MONTHS)
     Route: 065
  7. ISOTRETINOIN [Suspect]
     Active Substance: ISOTRETINOIN
     Dosage: 20 MILLIGRAM, QD (SCHEDULED FOR 3 MONTHS)
     Route: 065
  8. ISOTRETINOIN [Suspect]
     Active Substance: ISOTRETINOIN
     Dosage: 20 MILLIGRAM, QD (SCHEDULED FOR 3 MONTHS)
  9. TRETINOIN [Suspect]
     Active Substance: TRETINOIN
     Indication: Acquired perforating dermatosis
     Dosage: UNK
  10. TRETINOIN [Suspect]
     Active Substance: TRETINOIN
     Dosage: UNK
     Route: 065
  11. TRETINOIN [Suspect]
     Active Substance: TRETINOIN
     Dosage: UNK
     Route: 065
  12. TRETINOIN [Suspect]
     Active Substance: TRETINOIN
     Dosage: UNK
  13. CLOBETASOL [Suspect]
     Active Substance: CLOBETASOL
     Indication: Acquired perforating dermatosis
     Dosage: UNK
  14. CLOBETASOL [Suspect]
     Active Substance: CLOBETASOL
     Dosage: UNK
     Route: 065
  15. CLOBETASOL [Suspect]
     Active Substance: CLOBETASOL
     Dosage: UNK
     Route: 065
  16. CLOBETASOL [Suspect]
     Active Substance: CLOBETASOL
     Dosage: UNK
  17. DUPILUMAB [Suspect]
     Active Substance: DUPILUMAB
     Indication: Acquired perforating dermatosis
     Dosage: 300 MILLIGRAM (EVERY OTHER WEEK; SCHEDULED FOR 5 MONTHS)
  18. DUPILUMAB [Suspect]
     Active Substance: DUPILUMAB
     Dosage: 300 MILLIGRAM (EVERY OTHER WEEK; SCHEDULED FOR 5 MONTHS)
     Route: 058
  19. DUPILUMAB [Suspect]
     Active Substance: DUPILUMAB
     Dosage: 300 MILLIGRAM (EVERY OTHER WEEK; SCHEDULED FOR 5 MONTHS)
     Route: 058
  20. DUPILUMAB [Suspect]
     Active Substance: DUPILUMAB
     Dosage: 300 MILLIGRAM (EVERY OTHER WEEK; SCHEDULED FOR 5 MONTHS)

REACTIONS (2)
  - Drug ineffective [Unknown]
  - Off label use [Unknown]
